FAERS Safety Report 10302944 (Version 3)
Quarter: 2014Q3

REPORT INFORMATION
  Report Type: Spontaneous
  Country: US (occurrence: US)
  Receive Date: 20140714
  Receipt Date: 20140904
  Transmission Date: 20150326
  Serious: Yes (Other)
  Sender: FDA-Public Use
  Company Number: US-ASTELLAS-2014US003935

PATIENT
  Age: 79 Year
  Sex: Male

DRUGS (6)
  1. MYRBETRIQ [Suspect]
     Active Substance: MIRABEGRON
     Dosage: 25 MG + 50 MG TAKEN ALTERNATIVELY.
     Route: 048
     Dates: start: 20140411
  2. MYRBETRIQ [Suspect]
     Active Substance: MIRABEGRON
     Indication: HYPERTONIC BLADDER
     Route: 048
     Dates: start: 20140410, end: 20140410
  3. MYRBETRIQ [Suspect]
     Active Substance: MIRABEGRON
     Route: 065
     Dates: start: 201309
  4. MYRBETRIQ [Suspect]
     Active Substance: MIRABEGRON
     Route: 048
     Dates: start: 20140713
  5. MYRBETRIQ [Suspect]
     Active Substance: MIRABEGRON
     Route: 065
     Dates: start: 20140812
  6. ALFUZOSIN [Suspect]
     Active Substance: ALFUZOSIN
     Indication: HYPERTONIC BLADDER
     Dosage: UNK UNK, UNKNOWN FREQ.
     Route: 065
     Dates: start: 201408, end: 201408

REACTIONS (13)
  - Lyme disease [Unknown]
  - Urine output decreased [Unknown]
  - Dysuria [Unknown]
  - Drug ineffective [Unknown]
  - Anorectal discomfort [Unknown]
  - Bladder dilatation [Unknown]
  - Drug effect incomplete [Unknown]
  - Urinary retention [Recovered/Resolved]
  - Urine flow decreased [Unknown]
  - Intentional product misuse [Unknown]
  - Micturition urgency [Unknown]
  - Urine output increased [Recovered/Resolved]
  - Genital discomfort [Not Recovered/Not Resolved]

NARRATIVE: CASE EVENT DATE: 201408
